FAERS Safety Report 21777413 (Version 1)
Quarter: 2022Q4

REPORT INFORMATION
  Report Type: Spontaneous
  Country: US (occurrence: US)
  Receive Date: 20221226
  Receipt Date: 20221226
  Transmission Date: 20230112
  Serious: No
  Sender: FDA-Public Use
  Company Number: US-SA-SAC20221222000838

PATIENT
  Age: 22 Year
  Sex: Female

DRUGS (9)
  1. DUPIXENT [Suspect]
     Active Substance: DUPILUMAB
     Indication: Dermatitis atopic
     Dosage: UNK, QOW
     Route: 058
     Dates: start: 20210626
  2. PROZAC [Concomitant]
     Active Substance: FLUOXETINE HYDROCHLORIDE
     Dosage: UNK
  3. CLINDAMYCIN [Concomitant]
     Active Substance: CLINDAMYCIN
  4. HALOBETASOL PROPIONATE [Concomitant]
     Active Substance: HALOBETASOL PROPIONATE
  5. FISH OIL [Concomitant]
     Active Substance: FISH OIL
  6. PSYLLIUM [PLANTAGO SPP. POWDER] [Concomitant]
  7. IRON [Concomitant]
     Active Substance: IRON
  8. NORETHIN [Concomitant]
  9. CRANBERRY [Concomitant]
     Active Substance: CRANBERRY

REACTIONS (2)
  - Dry skin [Unknown]
  - Arthralgia [Unknown]
